FAERS Safety Report 6639895-X (Version None)
Quarter: 2010Q1

REPORT INFORMATION
  Report Type: 
  Country: None (occurrence: None)
  Receive Date: 20100318
  Receipt Date: 20100308
  Transmission Date: 20100710
  Serious: Yes (Hospitalization)
  Sender: FDA-Public Use
  Company Number: FR-WYE-H14114310

PATIENT
  Age: 92 Year
  Sex: Male

DRUGS (6)
  1. CORDARONE [Suspect]
     Indication: SUPRAVENTRICULAR TACHYCARDIA
     Dosage: 200 MG DAILY THEN 100 MG FIVE DAYS PER WEEK
     Route: 048
     Dates: start: 20100120, end: 20100211
  2. CORDARONE [Suspect]
     Indication: CARDIAC FAILURE
  3. PARIET [Concomitant]
  4. PERMIXON [Concomitant]
  5. KARDEGIC [Concomitant]
  6. AMLOR [Concomitant]

REACTIONS (2)
  - CONDITION AGGRAVATED [None]
  - IDIOPATHIC THROMBOCYTOPENIC PURPURA [None]
